FAERS Safety Report 24177098 (Version 1)
Quarter: 2024Q3

REPORT INFORMATION
  Report Type: Spontaneous
  Country: US (occurrence: US)
  Receive Date: 20240806
  Receipt Date: 20240806
  Transmission Date: 20241017
  Serious: Yes (Other)
  Sender: DOMPE FARMACEUTICI
  Company Number: US-FARMAPROD-202406-2228

PATIENT
  Age: 85 Year
  Sex: Female

DRUGS (3)
  1. OXERVATE [Suspect]
     Active Substance: CENEGERMIN-BKBJ
     Indication: Neurotrophic keratopathy
     Route: 047
     Dates: start: 20240422, end: 20240613
  2. ARTIFICIAL TEARS [Concomitant]
     Dates: start: 20240610
  3. OFLOXACIN [Concomitant]
     Active Substance: OFLOXACIN
     Dates: start: 20240610

REACTIONS (1)
  - Corneal perforation [Recovering/Resolving]

NARRATIVE: CASE EVENT DATE: 20240610
